FAERS Safety Report 25028458 (Version 3)
Quarter: 2025Q1

REPORT INFORMATION
  Report Type: Other
  Country: US (occurrence: US)
  Receive Date: 20250302
  Receipt Date: 20250327
  Transmission Date: 20250409
  Serious: No
  Sender: APOTEX
  Company Number: US-APOTEX-2025AP002219

PATIENT

DRUGS (1)
  1. MODAFINIL [Suspect]
     Active Substance: MODAFINIL
     Indication: Product used for unknown indication
     Route: 065

REACTIONS (20)
  - Facial pain [Recovered/Resolved]
  - Oral pain [Recovered/Resolved]
  - Product availability issue [Unknown]
  - Fatigue [Recovered/Resolved]
  - Gingival pain [Recovered/Resolved]
  - Toothache [Recovered/Resolved]
  - Pain [Recovered/Resolved]
  - Brain fog [Recovered/Resolved]
  - Amnesia [Recovered/Resolved]
  - Mobility decreased [Recovered/Resolved]
  - Product substitution issue [Unknown]
  - Somnolence [Recovered/Resolved]
  - Oral surgery [Recovered/Resolved]
  - Neuralgia [Recovered/Resolved]
  - Tremor [Recovered/Resolved]
  - Oral discomfort [Recovered/Resolved]
  - Asthenia [Recovered/Resolved]
  - Muscle twitching [Recovered/Resolved]
  - Tooth injury [Recovered/Resolved]
  - Drug ineffective [Unknown]
